FAERS Safety Report 14758298 (Version 6)
Quarter: 2018Q4

REPORT INFORMATION
  Report Type: Spontaneous
  Country: CA (occurrence: CA)
  Receive Date: 20180413
  Receipt Date: 20181205
  Transmission Date: 20190204
  Serious: Yes (Other)
  Sender: FDA-Public Use
  Company Number: CA-CELLTRION INC.-2018CA018225

PATIENT

DRUGS (15)
  1. INFLECTRA [Suspect]
     Active Substance: INFLIXIMAB-DYYB
     Dosage: 7 MG/KG, CYCLIC, EVERY 6 WEEKS
     Route: 042
     Dates: start: 20181122
  2. INFLECTRA [Suspect]
     Active Substance: INFLIXIMAB-DYYB
     Indication: ANKYLOSING SPONDYLITIS
     Dosage: 580 MG, CYCLIC (EVERY 6 WEEKS)
     Route: 042
     Dates: start: 20170908
  3. INFLECTRA [Suspect]
     Active Substance: INFLIXIMAB-DYYB
     Dosage: 580 MG, CYCLIC (EVERY 6 WEEKS)
     Route: 042
     Dates: start: 20180220
  4. INFLECTRA [Suspect]
     Active Substance: INFLIXIMAB-DYYB
     Dosage: 7 MG/KG, CYCLIC, EVERY 6 WEEKS
     Route: 042
     Dates: start: 20180905
  5. CIMZIA [Concomitant]
     Active Substance: CERTOLIZUMAB PEGOL
  6. INFLECTRA [Suspect]
     Active Substance: INFLIXIMAB-DYYB
     Dosage: 7 MG/KG, CYCLIC, EVERY 6 WEEKS
     Route: 042
     Dates: start: 20170908, end: 20180110
  7. INFLECTRA [Suspect]
     Active Substance: INFLIXIMAB-DYYB
     Dosage: 7 MG/KG, CYCLIC, EVERY 6 WEEKS
     Route: 042
     Dates: start: 20180905
  8. INFLECTRA [Suspect]
     Active Substance: INFLIXIMAB-DYYB
     Dosage: 7 MG/KG, CYCLIC, EVERY 6 WEEKS
     Route: 042
     Dates: start: 20181122
  9. HUMIRA [Concomitant]
     Active Substance: ADALIMUMAB
  10. SIMPONI [Concomitant]
     Active Substance: GOLIMUMAB
  11. INFLECTRA [Suspect]
     Active Substance: INFLIXIMAB-DYYB
     Dosage: 7 MG/KG, CYCLIC, EVERY 6 WEEKS
     Route: 042
     Dates: start: 20180517, end: 20180517
  12. NAPROXEN. [Concomitant]
     Active Substance: NAPROXEN
  13. INFLECTRA [Suspect]
     Active Substance: INFLIXIMAB-DYYB
     Dosage: 7 MG/KG, CYCLIC, EVERY 6 WEEKS
     Route: 042
     Dates: start: 20180719
  14. INFLECTRA [Suspect]
     Active Substance: INFLIXIMAB-DYYB
     Dosage: 7 MG/KG, CYCLIC, EVERY 6 WEEKS
     Route: 042
     Dates: start: 20180719
  15. COSENTYX [Concomitant]
     Active Substance: SECUKINUMAB

REACTIONS (9)
  - Inappropriate schedule of product administration [Unknown]
  - Blood pressure fluctuation [Unknown]
  - Gait disturbance [Unknown]
  - Product use issue [Unknown]
  - Thrombosis [Unknown]
  - Meniscus injury [Recovering/Resolving]
  - Incorrect product administration duration [Unknown]
  - Off label use [Unknown]
  - Pain [Recovering/Resolving]

NARRATIVE: CASE EVENT DATE: 20180310
